FAERS Safety Report 10558367 (Version 1)
Quarter: 2014Q4

REPORT INFORMATION
  Report Type: Spontaneous
  Country: US (occurrence: None)
  Receive Date: 20141029
  Receipt Date: 20141029
  Transmission Date: 20150529
  Serious: Yes (Other)
  Sender: FDA-Public Use
  Company Number: COR_00128_2014

PATIENT
  Age: 5 Year
  Sex: Male

DRUGS (3)
  1. THIOTEPA. [Suspect]
     Active Substance: THIOTEPA
     Indication: PRIMITIVE NEUROECTODERMAL TUMOUR
     Dosage: ON DAY -5, -4, -3
  2. ETOPOSIDE. [Suspect]
     Active Substance: ETOPOSIDE
     Indication: PRIMITIVE NEUROECTODERMAL TUMOUR
     Dosage: ON DAYS -5, -4, -3
  3. CARBOPLATIN. [Suspect]
     Active Substance: CARBOPLATIN
     Indication: PRIMITIVE NEUROECTODERMAL TUMOUR
     Dosage: ON DAYS -8, -7, AND -6

REACTIONS (9)
  - Pyrexia [None]
  - Mucosal inflammation [None]
  - Electrocardiogram QT prolonged [None]
  - Urinary tract infection [None]
  - Hypokalaemia [None]
  - Neutropenia [None]
  - Haematotoxicity [None]
  - Serratia infection [None]
  - Deafness [None]
